FAERS Safety Report 8800484 (Version 2)
Quarter: 2012Q4

REPORT INFORMATION
  Report Type: 
  Country: FR (occurrence: FR)
  Receive Date: 20120921
  Receipt Date: 20121221
  Transmission Date: 20130627
  Serious: Yes (Hospitalization)
  Sender: FDA-Public Use
  Company Number: PHHY2012FR080755

PATIENT
  Age: 72 Year
  Sex: Male

DRUGS (10)
  1. STALEVO [Suspect]
     Dosage: 150 mg daily + 100 mg four times daily
     Route: 048
  2. STALEVO [Suspect]
     Dosage: 375 mg daily
     Route: 048
     Dates: start: 20120516
  3. STALEVO [Suspect]
     Dosage: 75 mg, Q5H
     Route: 048
     Dates: start: 20120516, end: 20120520
  4. MODOPAR [Suspect]
     Dosage: 1 DF three times daily
     Route: 048
     Dates: end: 20120516
  5. MODOPAR [Suspect]
     Dosage: 1 DF four times daily
  6. SELEGILINE [Concomitant]
     Dosage: 1.25 mg twice daily
     Route: 048
  7. SIFROL [Concomitant]
     Dosage: 1 DF daily
     Route: 048
  8. ESCITALOPRAM [Concomitant]
     Dosage: 5 mg daily
     Route: 048
  9. LEXOMIL [Concomitant]
     Dosage: 6 mg daily
     Route: 048
  10. STILNOX [Concomitant]
     Dosage: 10 mg daily
     Route: 048

REACTIONS (11)
  - Renal failure acute [Recovered/Resolved]
  - Respiratory distress [Recovered/Resolved]
  - Subcutaneous haematoma [Unknown]
  - Altered state of consciousness [Unknown]
  - Bronchitis [Unknown]
  - Aphagia [Unknown]
  - Sedation [Unknown]
  - Dehydration [Unknown]
  - Rhabdomyolysis [Recovered/Resolved]
  - Dystonia [Unknown]
  - Dyskinesia [Recovered/Resolved]
